FAERS Safety Report 11633324 (Version 3)
Quarter: 2015Q4

REPORT INFORMATION
  Report Type: Spontaneous
  Country: US (occurrence: US)
  Receive Date: 20151015
  Receipt Date: 20151028
  Transmission Date: 20160304
  Serious: Yes (Other)
  Sender: FDA-Public Use
  Company Number: US-PFIZER INC-2015337034

PATIENT
  Age: 52 Year
  Sex: Male

DRUGS (2)
  1. METHYLPREDNISOLONE SODIUM SUCCINATE. [Suspect]
     Active Substance: METHYLPREDNISOLONE SODIUM SUCCINATE
     Indication: ARTERIOVENOUS FISTULA
     Dosage: UNK
     Route: 042
  2. PREDNISONE. [Concomitant]
     Active Substance: PREDNISONE
     Indication: ARTERIOVENOUS FISTULA
     Dosage: UNK
     Route: 048

REACTIONS (4)
  - Paraparesis [Unknown]
  - Urinary retention [Unknown]
  - Condition aggravated [Recovering/Resolving]
  - Nervous system disorder [Recovering/Resolving]
